FAERS Safety Report 26051587 (Version 1)
Quarter: 2025Q4

REPORT INFORMATION
  Report Type: Spontaneous
  Country: US (occurrence: US)
  Receive Date: 20251117
  Receipt Date: 20251117
  Transmission Date: 20260118
  Serious: Yes (Life-Threatening, Hospitalization)
  Sender: PROVEPHARM
  Company Number: US-Provepharm-2188672

PATIENT
  Age: 43 Year
  Sex: Female

DRUGS (5)
  1. PROVAYBLUE [Suspect]
     Active Substance: METHYLENE BLUE
     Indication: Methaemoglobinaemia
  2. PHENAZOPYRIDINE [Concomitant]
     Active Substance: PHENAZOPYRIDINE
  3. IBUPROFEN [Concomitant]
     Active Substance: IBUPROFEN
  4. OLANZAPINE [Concomitant]
     Active Substance: OLANZAPINE
  5. ESCITALOPRAM [Interacting]
     Active Substance: ESCITALOPRAM OXALATE

REACTIONS (4)
  - Serotonin syndrome [Recovered/Resolved]
  - Methaemoglobinaemia [Recovered/Resolved]
  - Anticholinergic syndrome [Recovered/Resolved]
  - Drug interaction [Recovered/Resolved]
